FAERS Safety Report 5058072-X (Version None)
Quarter: 2006Q3

REPORT INFORMATION
  Report Type: 
  Country: None (occurrence: None)
  Receive Date: 20060721
  Receipt Date: 20060712
  Transmission Date: 20061208
  Serious: Yes (Hospitalization)
  Sender: FDA-Public Use
  Company Number: TH-ROCHE-454992

PATIENT
  Age: 34 Year
  Sex: Female

DRUGS (2)
  1. ROCEPHIN [Suspect]
     Indication: PHARYNGITIS
     Dosage: INTRAVENOUS PUSH.
     Route: 042
     Dates: start: 20060705, end: 20060705
  2. AUGMENTIN '125' [Concomitant]
     Indication: PHARYNGITIS
     Dosage: THE PATIENT RECEIVED THREE SHOTS.
     Route: 042
     Dates: start: 20060702, end: 20060704

REACTIONS (6)
  - ABDOMINAL PAIN [None]
  - HYPOAESTHESIA [None]
  - NAUSEA [None]
  - PRURITUS [None]
  - RESPIRATORY DISTRESS [None]
  - VOMITING [None]
